FAERS Safety Report 8877492 (Version 2)
Quarter: 2012Q4

REPORT INFORMATION
  Report Type: 
  Country: BR (occurrence: BR)
  Receive Date: 20121024
  Receipt Date: 20121108
  Transmission Date: 20130627
  Serious: Yes (Other)
  Sender: FDA-Public Use
  Company Number: BR-PFIZER INC-2012253009

PATIENT
  Age: 53 Year
  Sex: Female
  Weight: 75 kg

DRUGS (15)
  1. CHAMPIX [Suspect]
     Indication: SMOKING CESSATION THERAPY
     Dosage: UNK
     Dates: start: 20111230, end: 2012
  2. CHAMPIX [Interacting]
     Dosage: UNK
     Dates: start: 201208, end: 2012
  3. EFEXOR XR [Interacting]
     Indication: ALTERED MOOD
     Dosage: UNK
     Dates: start: 20111122, end: 201207
  4. LAMITOR [Interacting]
     Indication: BIPOLAR DISORDER
     Dosage: 1 tablet (25 mg), 1x/day
  5. AMATO [Interacting]
     Indication: BIPOLAR DISORDER
     Dosage: 1 tablet (25 mg), 2x/day
  6. AMATO [Interacting]
     Indication: THYROIDITIS
  7. DEPAKOTE [Interacting]
     Indication: MOOD DISORDER NOS
     Dosage: 1 tablet a day
  8. SYNTHROID [Concomitant]
     Indication: THYROIDITIS
     Dosage: 1 tablet a day (fasting) in the morning
  9. DIOVAN HCT [Concomitant]
     Indication: HYPERTENSION
     Dosage: hydrochlorothiazide 12.5mg/valsartan 80mg; 1 tablet a day
  10. MELATONIN [Concomitant]
     Indication: SLEEP DISORDER THERAPY
     Dosage: UNK
  11. OMEGA 3 [Concomitant]
     Dosage: UNK
  12. QUETIAPINE [Concomitant]
     Indication: SLEEP DISORDER THERAPY
     Dosage: 25 mg, 1x/day
  13. ESTRADIOL/PROGESTERONE [Concomitant]
     Indication: HORMONE REPLACEMENT THERAPY
     Dosage: UNK
  14. VITAMIN D [Concomitant]
     Dosage: UNK
  15. CITALOR [Concomitant]
     Indication: CHOLESTEROL
     Dosage: UNK

REACTIONS (9)
  - Drug interaction [Recovered/Resolved]
  - Depression [Recovered/Resolved]
  - Agitation [Recovered/Resolved]
  - Anxiety [Unknown]
  - Affective disorder [Unknown]
  - Drug ineffective [Unknown]
  - Dysgeusia [Recovered/Resolved]
  - Food craving [Recovered/Resolved]
  - Increased appetite [Recovered/Resolved]
